FAERS Safety Report 8282512-6 (Version None)
Quarter: 2012Q2

REPORT INFORMATION
  Report Type: 
  Country: None (occurrence: None)
  Receive Date: 20120411
  Receipt Date: 20120405
  Transmission Date: 20120825
  Serious: Yes (Hospitalization, Other)
  Sender: FDA-Public Use
  Company Number: 2010SP014822

PATIENT
  Age: 32 Year
  Sex: Female
  Weight: 113.3993 kg

DRUGS (6)
  1. COUMADIN [Suspect]
     Indication: ANTICOAGULANT THERAPY
     Dates: start: 20080308, end: 20090308
  2. LOVENOX [Suspect]
     Indication: ANTICOAGULANT THERAPY
     Dates: start: 20080306
  3. FIORICET [Concomitant]
  4. IBUPROFEN [Concomitant]
  5. ZYRTEC [Suspect]
     Indication: HYPERSENSITIVITY
     Dates: start: 20080301
  6. NUVARING [Suspect]
     Indication: CONTRACEPTION
     Dates: start: 20070501, end: 20080301

REACTIONS (21)
  - PULMONARY EMBOLISM [None]
  - GASTROOESOPHAGEAL REFLUX DISEASE [None]
  - DIZZINESS [None]
  - CAESAREAN SECTION [None]
  - ECCHYMOSIS [None]
  - RESPIRATORY FAILURE [None]
  - HYPOCHROMIC ANAEMIA [None]
  - MATERNAL EXPOSURE BEFORE PREGNANCY [None]
  - CONTUSION [None]
  - BREAST CYST [None]
  - HYPERCOAGULATION [None]
  - PULMONARY INFARCTION [None]
  - PAIN [None]
  - DRUG HYPERSENSITIVITY [None]
  - THROMBOCYTOPENIA [None]
  - VENTRICULAR HYPOKINESIA [None]
  - DEEP VEIN THROMBOSIS [None]
  - MIGRAINE [None]
  - CARDIAC DISORDER [None]
  - MULTIPLE INJURIES [None]
  - ABORTION INDUCED [None]
